FAERS Safety Report 17735933 (Version 1)
Quarter: 2020Q2

REPORT INFORMATION
  Report Type: Spontaneous
  Country: CA (occurrence: CA)
  Receive Date: 20200501
  Receipt Date: 20200501
  Transmission Date: 20200714
  Serious: Yes (Death, Hospitalization)
  Sender: FDA-Public Use
  Company Number: CA-ROCHE-2589525

PATIENT
  Age: 67 Year
  Sex: Female

DRUGS (4)
  1. ZELBORAF [Suspect]
     Active Substance: VEMURAFENIB
     Indication: METASTATIC MALIGNANT MELANOMA
     Route: 048
  2. COUMADIN [Concomitant]
     Active Substance: WARFARIN SODIUM
     Route: 065
  3. ACETAMINOPHEN. [Concomitant]
     Active Substance: ACETAMINOPHEN
  4. MORPHINE SULFATE. [Suspect]
     Active Substance: MORPHINE SULFATE
     Indication: PRODUCT USED FOR UNKNOWN INDICATION
     Route: 065

REACTIONS (11)
  - Pain [Fatal]
  - Weight decreased [Fatal]
  - Anxiety [Fatal]
  - Nausea [Fatal]
  - Drug ineffective [Fatal]
  - Dyspnoea [Fatal]
  - Insomnia [Fatal]
  - Metastases to spine [Fatal]
  - Pain in extremity [Fatal]
  - Constipation [Fatal]
  - Rash pruritic [Fatal]
